FAERS Safety Report 7894696-X (Version None)
Quarter: 2011Q4

REPORT INFORMATION
  Report Type: 
  Country: None (occurrence: None)
  Receive Date: 20111106
  Receipt Date: 20110817
  Transmission Date: 20120403
  Serious: No
  Sender: FDA-Public Use
  Company Number: US-AMGEN-USASP2011041841

PATIENT
  Age: 32 Year
  Sex: Male
  Weight: 93.424 kg

DRUGS (2)
  1. ENBREL [Suspect]
     Indication: PRODUCT USED FOR UNKNOWN INDICATION
     Dosage: 50 MG, 2 TIMES/WK
     Route: 058
  2. MELOXICAM [Concomitant]
     Dosage: 15 MG, UNK
     Route: 048

REACTIONS (1)
  - BACK PAIN [None]
